FAERS Safety Report 20538027 (Version 1)
Quarter: 2022Q1

REPORT INFORMATION
  Report Type: Report from Study
  Country: US (occurrence: US)
  Receive Date: 20220302
  Receipt Date: 20220302
  Transmission Date: 20220423
  Serious: Yes (Hospitalization, Other)
  Sender: FDA-Public Use
  Company Number: US-GLAXOSMITHKLINE-US2022GSK037542

PATIENT
  Age: 25 Year
  Sex: Female

DRUGS (3)
  1. BELIMUMAB [Suspect]
     Active Substance: BELIMUMAB
     Indication: Systemic lupus erythematosus
     Dosage: 760 MG/MONTH
     Route: 042
  2. PREDNISONE [Concomitant]
     Active Substance: PREDNISONE
     Indication: Product used for unknown indication
     Dosage: AVERAGE DOSE 18.35 MG/DAY
  3. THALIDOMIDE [Concomitant]
     Active Substance: THALIDOMIDE
     Indication: Immunosuppressant drug therapy
     Dosage: UNK

REACTIONS (3)
  - Ophthalmic herpes zoster [Unknown]
  - Herpes zoster meningitis [Unknown]
  - Rash [Unknown]
